FAERS Safety Report 8027743-5 (Version None)
Quarter: 2012Q1

REPORT INFORMATION
  Report Type: 
  Country: None (occurrence: None)
  Receive Date: 20120106
  Receipt Date: 20120106
  Transmission Date: 20120608
  Serious: Yes (Other)
  Sender: FDA-Public Use
  Company Number: None

PATIENT
  Age: 54 Year
  Sex: Male
  Weight: 95.254 kg

DRUGS (2)
  1. PREDNISONE [Suspect]
     Indication: NASAL CONGESTION
     Dosage: 2 TABLETS
     Route: 048
     Dates: start: 20111213, end: 20111214
  2. PREDNISONE [Suspect]
     Indication: EAR DISORDER
     Dosage: 2 TABLETS
     Route: 048
     Dates: start: 20111213, end: 20111214

REACTIONS (2)
  - LIP SWELLING [None]
  - URTICARIA [None]
